FAERS Safety Report 7134515-2 (Version None)
Quarter: 2010Q4

REPORT INFORMATION
  Report Type: 
  Country: None (occurrence: None)
  Receive Date: 20101130
  Receipt Date: 20101130
  Transmission Date: 20110411
  Serious: Yes (Life-Threatening, Hospitalization)
  Sender: FDA-Public Use
  Company Number: None

PATIENT
  Age: 40 Year
  Sex: Female
  Weight: 111.1313 kg

DRUGS (3)
  1. EFFEXOR XR [Suspect]
     Indication: ANXIETY
     Dosage: 225MG ONCE A DAY PO
     Route: 048
     Dates: start: 20070701, end: 20101110
  2. EFFEXOR XR [Suspect]
     Indication: DEPRESSION
     Dosage: 225MG ONCE A DAY PO
     Route: 048
     Dates: start: 20070701, end: 20101110
  3. EFFEXOR XR [Suspect]

REACTIONS (3)
  - BLOOD GLUCOSE INCREASED [None]
  - DRUG WITHDRAWAL SYNDROME [None]
  - NO THERAPEUTIC RESPONSE [None]
